FAERS Safety Report 7535522-8 (Version None)
Quarter: 2011Q2

REPORT INFORMATION
  Report Type: 
  Country: None (occurrence: None)
  Receive Date: 20110609
  Receipt Date: 20110601
  Transmission Date: 20111010
  Serious: Yes (Other)
  Sender: FDA-Public Use
  Company Number: JP-JNJFOC-20110602384

PATIENT

DRUGS (5)
  1. FENTANYL-100 [Suspect]
     Route: 062
  2. UNKNOWN MEDICATION [Suspect]
     Indication: PRODUCT USED FOR UNKNOWN INDICATION
     Route: 065
  3. PROCHLORPERAZINE [Concomitant]
     Route: 048
  4. FENTANYL-100 [Suspect]
     Indication: CANCER PAIN
     Route: 062
  5. PRIMPERAN TAB [Concomitant]
     Route: 048

REACTIONS (5)
  - DEMENTIA [None]
  - SEDATION [None]
  - NAUSEA [None]
  - HAEMORRHOIDS [None]
  - VOMITING [None]
